FAERS Safety Report 25710487 (Version 1)
Quarter: 2025Q3

REPORT INFORMATION
  Report Type: Spontaneous
  Country: US (occurrence: None)
  Receive Date: 20250820
  Receipt Date: 20250820
  Transmission Date: 20251021
  Serious: Yes (Life-Threatening, Hospitalization, Disabling)
  Sender: FDA-CTU
  Company Number: None

PATIENT
  Age: 80 Year
  Sex: Male
  Weight: 99 kg

DRUGS (8)
  1. DERMAKLEEN [Suspect]
     Active Substance: CHLOROXYLENOL
     Indication: Therapeutic skin care topical
     Dosage: FREQUENCY : 3 TIMES A DAY;?
     Route: 061
     Dates: start: 20250616, end: 20250627
  2. JARDIANCE [Concomitant]
     Active Substance: EMPAGLIFLOZIN
  3. REPATHA [Concomitant]
     Active Substance: EVOLOCUMAB
  4. orgivix [Concomitant]
  5. UNSPECIFIED INGREDIENT [Concomitant]
     Active Substance: UNSPECIFIED INGREDIENT
  6. VITAMIN D [Concomitant]
     Active Substance: VITAMIN D NOS
  7. COLACE [Concomitant]
     Active Substance: DOCUSATE SODIUM
  8. Nervive [Concomitant]

REACTIONS (8)
  - Incoherent [None]
  - Body temperature increased [None]
  - Disorientation [None]
  - Fall [None]
  - Contusion [None]
  - Sepsis [None]
  - Haematological infection [None]
  - Therapy non-responder [None]

NARRATIVE: CASE EVENT DATE: 20250627
